APPROVED DRUG PRODUCT: COLAZAL
Active Ingredient: BALSALAZIDE DISODIUM
Strength: 750MG
Dosage Form/Route: CAPSULE;ORAL
Application: N020610 | Product #001 | TE Code: AB
Applicant: VALEANT PHARMACEUTICALS INTERNATIONAL
Approved: Jul 18, 2000 | RLD: Yes | RS: Yes | Type: RX

PATENTS:
Patent 7452872 | Expires: Aug 24, 2026
Patent 7452872*PED | Expires: Feb 24, 2027
Patent 7625884*PED | Expires: Feb 24, 2027
Patent 7625884 | Expires: Aug 24, 2026